FAERS Safety Report 8891221 (Version 6)
Quarter: 2013Q3

REPORT INFORMATION
  Report Type: Spontaneous
  Country: US (occurrence: US)
  Receive Date: 20121107
  Receipt Date: 20130711
  Transmission Date: 20140515
  Serious: Yes (Hospitalization, Other)
  Sender: FDA-Public Use
  Company Number: US-009507513-1211USA002234

PATIENT
  Sex: Male
  Weight: 93.4 kg

DRUGS (8)
  1. FOSAMAX [Suspect]
     Indication: OSTEOPENIA
     Dosage: 70 MG, UNK
     Route: 048
     Dates: start: 20011203, end: 200810
  2. FOSAMAX [Suspect]
     Indication: BONE DENSITY ABNORMAL
  3. FOSAMAX [Suspect]
     Indication: OSTEOPENIA
     Dosage: UNK
     Route: 048
     Dates: start: 2001, end: 2010
  4. FOSAMAX [Suspect]
     Indication: BONE DENSITY ABNORMAL
  5. ALENDRONATE SODIUM [Suspect]
     Indication: BONE DENSITY ABNORMAL
     Dosage: 70 MG, UNK
     Route: 048
     Dates: start: 200810, end: 20100106
  6. CORTICOSTEROIDS (UNSPECIFIED) [Concomitant]
     Dosage: UNK
     Dates: start: 1984
  7. PREDNISONE [Concomitant]
     Indication: SYSTEMIC LUPUS ERYTHEMATOSUS
     Dosage: 5-50 MG, QD
     Dates: start: 1990
  8. PLAQUENIL [Concomitant]
     Indication: SYSTEMIC LUPUS ERYTHEMATOSUS
     Dosage: 200 MG, UNK
     Dates: start: 2002

REACTIONS (25)
  - Open reduction of fracture [Unknown]
  - Rib fracture [Unknown]
  - Renal failure acute [Unknown]
  - Hyperglycaemia [Unknown]
  - Transient ischaemic attack [Unknown]
  - Thrombotic thrombocytopenic purpura [Unknown]
  - Femur fracture [Unknown]
  - Stress fracture [Unknown]
  - Hypothyroidism [Unknown]
  - Blood disorder [Unknown]
  - Foot fracture [Unknown]
  - Phlebitis [Unknown]
  - Bone lesion [Unknown]
  - Hypocoagulable state [Unknown]
  - Foot deformity [Unknown]
  - Hypercholesterolaemia [Unknown]
  - Hypertension [Unknown]
  - Foot fracture [Unknown]
  - Blood glucose increased [Unknown]
  - Stress fracture [Unknown]
  - Osteoporosis [Unknown]
  - Post thrombotic syndrome [Unknown]
  - Diastolic dysfunction [Unknown]
  - Coronary artery disease [Unknown]
  - Protein S deficiency [Unknown]
